FAERS Safety Report 4717230-1 (Version None)
Quarter: 2005Q3

REPORT INFORMATION
  Report Type: 
  Country: None (occurrence: None)
  Receive Date: 20050719
  Receipt Date: 20050420
  Transmission Date: 20060218
  Serious: Yes (Other)
  Sender: FDA-Public Use
  Company Number: 200513353US

PATIENT
  Age: 63 Year
  Sex: Male

DRUGS (7)
  1. LANTUS [Suspect]
     Indication: DIABETES MELLITUS INSULIN-DEPENDENT
     Dosage: DOSE: UNK
     Dates: start: 20020101
  2. OPTICLIK (INSULIN INJECTION PEN) [Suspect]
     Dates: start: 20050401
  3. SYNTHROID [Concomitant]
  4. LIPITOR [Concomitant]
  5. PRINIVIL [Concomitant]
  6. ASPIRIN [Concomitant]
  7. HUMALOG [Concomitant]

REACTIONS (4)
  - BLOOD GLUCOSE INCREASED [None]
  - DEVICE MALFUNCTION [None]
  - HYPOGLYCAEMIC COMA [None]
  - ROAD TRAFFIC ACCIDENT [None]
